FAERS Safety Report 5525562-2 (Version None)
Quarter: 2007Q4

REPORT INFORMATION
  Report Type: 
  Country: None (occurrence: None)
  Receive Date: 20071126
  Receipt Date: 20071116
  Transmission Date: 20080405
  Serious: Yes (Death)
  Sender: FDA-Public Use
  Company Number: B0494360A

PATIENT
  Age: 100 Year
  Sex: Female
  Weight: 53 kg

DRUGS (5)
  1. ARIXTRA [Suspect]
     Dosage: 1.5MG PER DAY
     Route: 058
     Dates: start: 20071031, end: 20071101
  2. PERFALGAN [Concomitant]
     Dates: start: 20071031
  3. CONTRAMAL [Concomitant]
     Dates: start: 20071031
  4. MONOTILDIEM [Concomitant]
     Dates: start: 20071031
  5. VASTAREL [Concomitant]
     Dates: start: 20071031

REACTIONS (8)
  - ABDOMINAL PAIN [None]
  - ACUTE ABDOMEN [None]
  - DIARRHOEA HAEMORRHAGIC [None]
  - HAEMATEMESIS [None]
  - INTESTINAL ISCHAEMIA [None]
  - LEUKOCYTOSIS [None]
  - MELAENA [None]
  - RENAL FAILURE ACUTE [None]
